FAERS Safety Report 9406356 (Version 1)
Quarter: 2013Q3

REPORT INFORMATION
  Report Type: Report from Study
  Country: BE (occurrence: BE)
  Receive Date: 20130718
  Receipt Date: 20130718
  Transmission Date: 20140515
  Serious: Yes (Hospitalization)
  Sender: FDA-Public Use
  Company Number: BE-ABBOTT-13P-013-1117428-00

PATIENT
  Age: 57 Year
  Sex: Male
  Weight: 86 kg

DRUGS (5)
  1. HUMIRA [Suspect]
     Indication: ANKYLOSING SPONDYLITIS
     Dates: start: 20100603, end: 20130116
  2. HUMIRA [Suspect]
     Dates: start: 20130130
  3. CALCIUM D SANDOZ [Concomitant]
     Indication: OSTEOPENIA
     Dosage: 600 MG/400 IE
     Route: 048
     Dates: start: 20100703
  4. PROGLUMETACINE (TOLINDOL) [Concomitant]
     Indication: INFLAMMATION
     Route: 048
  5. VITAMIN D [Concomitant]
     Indication: OSTEOPENIA
     Route: 048
     Dates: start: 20100703

REACTIONS (1)
  - Meniscus injury [Recovered/Resolved]
